FAERS Safety Report 15420343 (Version 1)
Quarter: 2018Q3

REPORT INFORMATION
  Report Type: Spontaneous
  Country: US (occurrence: US)
  Receive Date: 20180924
  Receipt Date: 20180924
  Transmission Date: 20181010
  Serious: Yes (Hospitalization, Disabling)
  Sender: FDA-Public Use
  Company Number: US-NOVOPROD-622357

PATIENT
  Age: 57 Year
  Sex: Female

DRUGS (2)
  1. NOVOLOG [Suspect]
     Active Substance: INSULIN ASPART
     Indication: TYPE 2 DIABETES MELLITUS
     Dosage: 19 U, TID
     Route: 058
  2. LANTUS [Suspect]
     Active Substance: INSULIN GLARGINE
     Indication: TYPE 2 DIABETES MELLITUS
     Dosage: 35 U, BID IN THE MORNING AND EVENING)
     Route: 058
     Dates: start: 2014

REACTIONS (4)
  - Localised infection [Not Recovered/Not Resolved]
  - Poor peripheral circulation [Unknown]
  - Cellulitis [Not Recovered/Not Resolved]
  - Diabetic foot [Not Recovered/Not Resolved]
